FAERS Safety Report 12355791 (Version 3)
Quarter: 2017Q1

REPORT INFORMATION
  Report Type: Report from Study
  Country: None (occurrence: FR)
  Receive Date: 20160511
  Receipt Date: 20170316
  Transmission Date: 20170428
  Serious: Yes (Hospitalization)
  Sender: FDA-Public Use
  Company Number: FR-ABBVIE-16P-056-1596672-00

PATIENT
  Age: 74 Year
  Sex: Female
  Weight: 58.7 kg

DRUGS (50)
  1. VINCRISTINE [Suspect]
     Active Substance: VINCRISTINE
     Indication: NON-HODGKIN^S LYMPHOMA
     Dosage: MOST RECENT DOSE(2 MG) PRIOR TO AE ONSET 29MAR2016 AT 23:00
     Route: 042
     Dates: start: 20160308
  2. ZYLORIC [Concomitant]
     Active Substance: ALLOPURINOL
     Indication: LYMPHOMA
     Dates: start: 20160303, end: 20160307
  3. POLARAMINE [Concomitant]
     Active Substance: DEXCHLORPHENIRAMINE MALEATE
     Dates: start: 20160420, end: 20160420
  4. GRANOCYTE [Concomitant]
     Active Substance: LENOGRASTIM
     Dates: start: 20160426, end: 20160502
  5. XANAX [Concomitant]
     Active Substance: ALPRAZOLAM
     Indication: ANXIETY
     Dates: start: 20160511
  6. VENETOCLAX [Suspect]
     Active Substance: VENETOCLAX
     Indication: NON-HODGKIN^S LYMPHOMA
     Dosage: MOST RECENT DOSE (800 MG) PRIOR TO AE ONSET 30MAR2016
     Route: 048
     Dates: start: 20160310
  7. LOVENOX [Concomitant]
     Active Substance: ENOXAPARIN SODIUM
     Indication: PULMONARY EMBOLISM
     Dates: start: 20160226
  8. PARACETAMOL [Concomitant]
     Active Substance: ACETAMINOPHEN
     Dates: start: 20160511, end: 20160511
  9. ERYTHROCYTES [Concomitant]
     Active Substance: HUMAN RED BLOOD CELL
     Indication: INFECTION
     Dates: start: 20160331, end: 20160401
  10. PREDNISONE. [Suspect]
     Active Substance: PREDNISONE
     Indication: NON-HODGKIN^S LYMPHOMA
     Dosage: MOST RECENT DOSE (100 M) PRIOR TO AE ONSET 01APR2016
     Route: 048
     Dates: start: 20160307
  11. HEXTRIL [Concomitant]
     Indication: ORAL INFECTION
     Dates: start: 20160302
  12. AERIUS [Concomitant]
     Active Substance: DESLORATADINE
     Indication: PREMEDICATION
     Dates: start: 20160304, end: 20160304
  13. PARACETAMOL [Concomitant]
     Active Substance: ACETAMINOPHEN
     Dates: start: 20160627, end: 20160627
  14. RENITEC [Concomitant]
     Active Substance: ENALAPRIL MALEATE
     Indication: HYPERTENSION
  15. PARACETAMOL [Concomitant]
     Active Substance: ACETAMINOPHEN
     Dates: start: 20160601, end: 20160601
  16. ERYTHROCYTES [Concomitant]
     Active Substance: HUMAN RED BLOOD CELL
     Indication: ANAEMIA
     Dates: start: 20160329, end: 20160329
  17. GRANOCYTE [Concomitant]
     Active Substance: LENOGRASTIM
     Dates: start: 20160622, end: 20160623
  18. GRANOCYTE [Concomitant]
     Active Substance: LENOGRASTIM
     Dates: start: 20160703, end: 20160709
  19. METRONIDAZOLE. [Concomitant]
     Active Substance: METRONIDAZOLE
     Indication: GASTRITIS
     Dates: start: 20160607, end: 20160611
  20. PANTOPRAZOLE [Concomitant]
     Active Substance: PANTOPRAZOLE SODIUM
     Indication: OESOPHAGITIS
     Dates: start: 20160302
  21. FASTURTEC [Concomitant]
     Active Substance: RASBURICASE
     Indication: TUMOUR LYSIS SYNDROME
     Dates: start: 20160307, end: 20160307
  22. POLARAMINE [Concomitant]
     Active Substance: DEXCHLORPHENIRAMINE MALEATE
     Dates: start: 20160511, end: 20160511
  23. POLARAMINE [Concomitant]
     Active Substance: DEXCHLORPHENIRAMINE MALEATE
     Dates: start: 20160627, end: 20160627
  24. LANSOYL [Concomitant]
     Active Substance: MINERAL OIL
     Indication: CONSTIPATION
     Dates: start: 20160304, end: 20160403
  25. SODIUM BICARBONATE. [Concomitant]
     Active Substance: SODIUM BICARBONATE
     Indication: ORAL INFECTION
     Dates: start: 20160302
  26. PRIMPERAN [Concomitant]
     Active Substance: METOCLOPRAMIDE HYDROCHLORIDE
     Indication: NAUSEA
     Dates: start: 20160303, end: 20160304
  27. ERYTHROCYTES [Concomitant]
     Active Substance: HUMAN RED BLOOD CELL
     Indication: ANAEMIA
     Dates: start: 20160331, end: 20160401
  28. ERYTHROCYTES [Concomitant]
     Active Substance: HUMAN RED BLOOD CELL
     Indication: INFECTION
     Dates: start: 20160329, end: 20160329
  29. ERYTHROCYTES [Concomitant]
     Active Substance: HUMAN RED BLOOD CELL
     Dates: start: 20160304, end: 20160304
  30. PARACETAMOL [Concomitant]
     Active Substance: ACETAMINOPHEN
     Dates: start: 20160329, end: 20160329
  31. POLARAMINE [Concomitant]
     Active Substance: DEXCHLORPHENIRAMINE MALEATE
     Dates: start: 20160329, end: 20160329
  32. ERYTHROCYTES [Concomitant]
     Active Substance: HUMAN RED BLOOD CELL
     Dates: start: 20160304, end: 20160304
  33. INNOHEP [Concomitant]
     Active Substance: TINZAPARIN SODIUM
     Indication: THROMBOSIS
     Dates: start: 20160401
  34. GRANOCYTE [Concomitant]
     Active Substance: LENOGRASTIM
     Dates: start: 20160517, end: 20160523
  35. AMOXICILLINE [Concomitant]
     Active Substance: AMOXICILLIN
     Indication: GASTRITIS
     Dates: start: 20160602, end: 20160606
  36. CLARITHROMYCINE [Concomitant]
     Active Substance: CLARITHROMYCIN
     Indication: GASTRITIS
     Dates: start: 20160607, end: 20160611
  37. RITUXIMAB [Suspect]
     Active Substance: RITUXIMAB
     Indication: NON-HODGKIN^S LYMPHOMA
     Dosage: MOST RECENT DOSE (615 MG) PRIOR TO AE ONSET 29MAR2016 AT 20:00
     Route: 042
     Dates: start: 20160307
  38. CYCLOPHOSPHAMIDE. [Suspect]
     Active Substance: CYCLOPHOSPHAMIDE
     Indication: NON-HODGKIN^S LYMPHOMA
     Dosage: MOST RECENT DOSE(1230 MG) PRIOR TO AE ONSET 29MAR2016 AT 20:00
     Route: 042
     Dates: start: 20160308
  39. POLARAMINE [Concomitant]
     Active Substance: DEXCHLORPHENIRAMINE MALEATE
     Indication: PREMEDICATION
     Dates: start: 20160307, end: 20160307
  40. POLARAMINE [Concomitant]
     Active Substance: DEXCHLORPHENIRAMINE MALEATE
     Dates: start: 20160601, end: 20160601
  41. GRANOCYTE [Concomitant]
     Active Substance: LENOGRASTIM
     Dates: start: 20160317, end: 20160322
  42. SOLUPRED [Concomitant]
     Active Substance: PREDNISOLONE
     Indication: LYMPHOMA
     Dates: start: 20160303, end: 20160307
  43. DOXORUBICIN [Suspect]
     Active Substance: DOXORUBICIN
     Indication: NON-HODGKIN^S LYMPHOMA
     Dosage: MOST RECENT DOSE(82 MG) PRIOR TO AE ONSET 29MAR2016 AT 21:45
     Route: 042
     Dates: start: 20160308
  44. PARACETAMOL [Concomitant]
     Active Substance: ACETAMINOPHEN
     Indication: PREMEDICATION
     Dates: start: 20160307, end: 20160307
  45. PARACETAMOL [Concomitant]
     Active Substance: ACETAMINOPHEN
     Dates: start: 20160420, end: 20160420
  46. EDUCTYL [Concomitant]
     Active Substance: POTASSIUM BITARTRATE\SODIUM BICARBONATE
     Indication: CONSTIPATION
     Dates: start: 20160401
  47. GRANOCYTE [Concomitant]
     Active Substance: LENOGRASTIM
     Indication: NEUTROPENIA
     Dates: start: 20160404, end: 20160410
  48. ZOPHREN [Concomitant]
     Active Substance: ONDANSETRON
     Indication: NAUSEA
     Dates: start: 20160309, end: 20160313
  49. EPOETIN ALFA [Concomitant]
     Active Substance: ERYTHROPOIETIN
     Indication: ANAEMIA
     Dates: start: 20160511
  50. EUPANTOL [Concomitant]
     Active Substance: PANTOPRAZOLE SODIUM
     Indication: GASTRITIS
     Dates: start: 20160602

REACTIONS (1)
  - Gastric ulcer [Recovered/Resolved]

NARRATIVE: CASE EVENT DATE: 20160322
